FAERS Safety Report 5484528-1 (Version None)
Quarter: 2007Q4

REPORT INFORMATION
  Report Type: 
  Country: None (occurrence: None)
  Receive Date: 20071010
  Receipt Date: 20070925
  Transmission Date: 20080405
  Serious: Yes (Hospitalization)
  Sender: FDA-Public Use
  Company Number: 2007S1009368

PATIENT
  Sex: Male

DRUGS (1)
  1. VERAPAMIL HCL [Suspect]
     Dosage: 6 GM; X1

REACTIONS (3)
  - CARDIOVASCULAR DISORDER [None]
  - DRUG TOXICITY [None]
  - INCORRECT DOSE ADMINISTERED [None]
